FAERS Safety Report 18603375 (Version 1)
Quarter: 2020Q4

REPORT INFORMATION
  Report Type: Spontaneous
  Country: CN (occurrence: CN)
  Receive Date: 20201210
  Receipt Date: 20201210
  Transmission Date: 20210114
  Serious: Yes (Hospitalization)
  Sender: FDA-Public Use
  Company Number: CN-BAXTER-2020BAX025028

PATIENT
  Age: 65 Year
  Sex: Male
  Weight: 75 kg

DRUGS (16)
  1. 0.9% SODIUM CHLORIDE INJECTION [Suspect]
     Active Substance: SODIUM CHLORIDE
     Dosage: DOSE RE-INTRODUCED; VINDESINE SULFATE + 0.9% SODIUM CHLORIDE
     Route: 041
  2. 5% GLUCOSE  INJECTION [Suspect]
     Active Substance: DEXTROSE
     Indication: MEDICATION DILUTION
     Dosage: DAY2-DAY3; DOXORUBICIN HYDROCHLORIDE LIPOSOMAL 20 MG + 5% GLUCOSE 250 ML
     Route: 041
     Dates: start: 20201107, end: 20201108
  3. DOXORUBICIN HYDROCHLORIDE LIPOSOMAL [Suspect]
     Active Substance: DOXORUBICIN HYDROCHLORIDE
     Indication: PLASMABLASTIC LYMPHOMA
     Dosage: DAY2-DAY3; DOXORUBICIN HYDROCHLORIDE LIPOSOMAL 20 MG + 5% GLUCOSE 250 ML
     Route: 041
     Dates: start: 20201107, end: 20201108
  4. ENDOXAN [Suspect]
     Active Substance: CYCLOPHOSPHAMIDE
     Dosage: DOSE RE-INTRODUCED; CYCLOPHOSPHAMIDE + 0.9% SODIUM CHLORIDE
     Route: 041
  5. 0.9% SODIUM CHLORIDE INJECTION [Suspect]
     Active Substance: SODIUM CHLORIDE
     Dosage: DOSE RE-INTRODUCED; CYCLOPHOSPHAMIDE + 0.9% SODIUM CHLORIDE
     Route: 041
  6. XIAIKE [Suspect]
     Active Substance: VINDESINE
     Indication: PLASMABLASTIC LYMPHOMA
     Dosage: DAY1-DAY4; VINDESINE SULFATE 1 MG + 0.9% SODIUM CHLORIDE 500 ML
     Route: 041
     Dates: start: 20201106, end: 20201109
  7. 0.9% SODIUM CHLORIDE INJECTION [Suspect]
     Active Substance: SODIUM CHLORIDE
     Indication: MEDICATION DILUTION
     Dosage: DAY5; CYCLOPHOSPHAMIDE 800 MG + 0.9% SODIUM CHLORIDE 500 ML
     Route: 041
     Dates: start: 20201110, end: 20201110
  8. 5% GLUCOSE  INJECTION [Suspect]
     Active Substance: DEXTROSE
     Dosage: DOSE RE-INTRODUCED; DOXORUBICIN HYDROCHLORIDE LIPOSOMAL + 5% GLUCOSE
     Route: 041
  9. 0.9% SODIUM CHLORIDE INJECTION [Suspect]
     Active Substance: SODIUM CHLORIDE
     Dosage: DOSE RE-INTRODUCED; ETOPOSIDE + 0.9% SODIUM CHLORIDE
     Route: 041
  10. DOXORUBICIN HYDROCHLORIDE LIPOSOMAL [Suspect]
     Active Substance: DOXORUBICIN HYDROCHLORIDE
     Dosage: DOSE RE-INTRODUCED; DOXORUBICIN HYDROCHLORIDE LIPOSOMAL + 5% GLUCOSE
     Route: 041
  11. ENDOXAN [Suspect]
     Active Substance: CYCLOPHOSPHAMIDE
     Indication: PLASMABLASTIC LYMPHOMA
     Dosage: DAY5; CYCLOPHOSPHAMIDE 800 MG + 0.9% SODIUM CHLORIDE 500 ML
     Route: 041
     Dates: start: 20201110, end: 20201110
  12. 0.9% SODIUM CHLORIDE INJECTION [Suspect]
     Active Substance: SODIUM CHLORIDE
     Dosage: DAY1-DAY4; VINDESINE SULFATE 1 MG + 0.9% SODIUM CHLORIDE 500 ML
     Route: 041
     Dates: start: 20201106, end: 20201109
  13. ETOPOSIDE. [Suspect]
     Active Substance: ETOPOSIDE
     Dosage: DOSE RE-INTRODUCED; ETOPOSIDE + 0.9% SODIUM CHLORIDE
     Route: 041
  14. 0.9% SODIUM CHLORIDE INJECTION [Suspect]
     Active Substance: SODIUM CHLORIDE
     Dosage: DAY1-DAY4; ETOPOSIDE 60 MG + 0.9% SODIUM CHLORIDE 500 ML
     Route: 041
     Dates: start: 20201106, end: 20201109
  15. ETOPOSIDE. [Suspect]
     Active Substance: ETOPOSIDE
     Indication: PLASMABLASTIC LYMPHOMA
     Dosage: DAY1-DAY4; ETOPOSIDE 60 MG + 0.9% SODIUM CHLORIDE 500 ML
     Route: 041
     Dates: start: 20201106, end: 20201109
  16. XIAIKE [Suspect]
     Active Substance: VINDESINE
     Dosage: DOSE RE-INTRODUCE; VINDESINE SULFATE + 0.9% SODIUM CHLORIDE
     Route: 041

REACTIONS (1)
  - Myelosuppression [Recovered/Resolved]

NARRATIVE: CASE EVENT DATE: 20201118
